FAERS Safety Report 22521303 (Version 3)
Quarter: 2025Q1

REPORT INFORMATION
  Report Type: Spontaneous
  Country: US (occurrence: US)
  Receive Date: 20230605
  Receipt Date: 20250109
  Transmission Date: 20250409
  Serious: No
  Sender: PFIZER
  Company Number: US-PFIZER INC-202300040114

PATIENT
  Age: 92 Year
  Sex: Male
  Weight: 82.55 kg

DRUGS (8)
  1. VYNDAMAX [Suspect]
     Active Substance: TAFAMIDIS
     Indication: Cardiac amyloidosis
     Dates: start: 2022
  2. VYNDAMAX [Suspect]
     Active Substance: TAFAMIDIS
  3. ALLOPURINOL [Concomitant]
     Active Substance: ALLOPURINOL
  4. TELMISARTAN [Concomitant]
     Active Substance: TELMISARTAN
  5. AMLODIPINE [Concomitant]
     Active Substance: AMLODIPINE BESYLATE
  6. ELIQUIS [Concomitant]
     Active Substance: APIXABAN
  7. TORSEMIDE [Concomitant]
     Active Substance: TORSEMIDE
  8. SPIRONOLACTONE [Concomitant]
     Active Substance: SPIRONOLACTONE

REACTIONS (1)
  - Hypoacusis [Unknown]
